FAERS Safety Report 8880769 (Version 1)
Quarter: 2012Q4

REPORT INFORMATION
  Report Type: 
  Country: US (occurrence: US)
  Receive Date: 20121101
  Receipt Date: 20121101
  Transmission Date: 20130627
  Serious: Yes (Other)
  Sender: FDA-Public Use
  Company Number: US-JNJFOC-20121014466

PATIENT

DRUGS (2)
  1. XARELTO [Suspect]
     Indication: EMBOLISM VENOUS
     Dosage: 24 hours post orthopedic surgery
     Route: 065
  2. XARELTO [Suspect]
     Indication: ORTHOPEDIC PROCEDURE
     Dosage: 24 hours post orthopedic surgery
     Route: 065

REACTIONS (2)
  - Deep vein thrombosis [Unknown]
  - Pulmonary embolism [Unknown]
